FAERS Safety Report 25469572 (Version 1)
Quarter: 2025Q2

REPORT INFORMATION
  Report Type: Spontaneous
  Country: US (occurrence: US)
  Receive Date: 20250623
  Receipt Date: 20250623
  Transmission Date: 20250716
  Serious: No
  Sender: PFIZER
  Company Number: US-PFIZER INC-202500124034

PATIENT
  Age: 25 Year

DRUGS (10)
  1. ZAVZPRET [Suspect]
     Active Substance: ZAVEGEPANT HYDROCHLORIDE
     Indication: Migraine
     Dates: start: 202501
  2. ZAVZPRET [Suspect]
     Active Substance: ZAVEGEPANT HYDROCHLORIDE
     Indication: Hemiplegic migraine
  3. BACLOFEN [Concomitant]
     Active Substance: BACLOFEN
     Indication: Swelling face
  4. BACLOFEN [Concomitant]
     Active Substance: BACLOFEN
     Indication: Periorbital swelling
  5. TYLENOL [Concomitant]
     Active Substance: ACETAMINOPHEN
     Indication: Analgesic therapy
  6. MIDODRINE [Concomitant]
     Active Substance: MIDODRINE
     Indication: Hypotension
  7. CORLANOR [Concomitant]
     Active Substance: IVABRADINE HYDROCHLORIDE
     Indication: Heart rate increased
  8. LEVOTHYROXINE [Concomitant]
     Active Substance: LEVOTHYROXINE
     Indication: Hypothyroidism
  9. TORADOL [Concomitant]
     Active Substance: KETOROLAC TROMETHAMINE
  10. NURTEC ODT [Concomitant]
     Active Substance: RIMEGEPANT SULFATE
     Indication: Migraine

REACTIONS (2)
  - Nausea [Recovering/Resolving]
  - Dysgeusia [Recovering/Resolving]
